FAERS Safety Report 20422137 (Version 2)
Quarter: 2022Q1

REPORT INFORMATION
  Report Type: Spontaneous
  Country: US (occurrence: None)
  Receive Date: 20220203
  Receipt Date: 20220302
  Transmission Date: 20220423
  Serious: No
  Sender: FDA-Public Use
  Company Number: 2022A038568

PATIENT
  Sex: Male
  Weight: 102.1 kg

DRUGS (1)
  1. BUDESONIDE\FORMOTEROL\GLYCOPYRRONIUM [Suspect]
     Active Substance: BUDESONIDE\FORMOTEROL\GLYCOPYRRONIUM
     Indication: COVID-19
     Dosage: 160MCG/9MCG/4.8MCG, 120 INHALATIONS, 2 UNKNOWN
     Route: 055

REACTIONS (7)
  - Hypoacusis [Unknown]
  - Amnesia [Unknown]
  - Wheezing [Unknown]
  - Cough [Unknown]
  - Off label use [Unknown]
  - Device use issue [Unknown]
  - Device delivery system issue [Unknown]
